FAERS Safety Report 14728215 (Version 2)
Quarter: 2018Q3

REPORT INFORMATION
  Report Type: Spontaneous
  Country: FR (occurrence: FR)
  Receive Date: 20180406
  Receipt Date: 20180926
  Transmission Date: 20181010
  Serious: Yes (Hospitalization)
  Sender: FDA-Public Use
  Company Number: FR-MYLANLABS-2018M1022914

PATIENT
  Age: 77 Year
  Sex: Male
  Weight: 80 kg

DRUGS (9)
  1. DIFFU K [Concomitant]
     Active Substance: POTASSIUM CHLORIDE
     Indication: PRODUCT USED FOR UNKNOWN INDICATION
  2. BISOCE 2,5 MG, COMPRIM? PELLICUL? S?CABLE [Suspect]
     Active Substance: BISOPROLOL FUMARATE
     Indication: PRODUCT USED FOR UNKNOWN INDICATION
     Dosage: 2.5 MG, QD
     Route: 048
     Dates: start: 20170602, end: 20170608
  3. LOVENOX [Suspect]
     Active Substance: ENOXAPARIN SODIUM
     Indication: CEREBROVASCULAR ACCIDENT
     Dosage: 1600 IU, QD
     Route: 058
     Dates: start: 20170603, end: 20170608
  4. BISOPROLOL [Concomitant]
     Active Substance: BISOPROLOL
     Indication: PRODUCT USED FOR UNKNOWN INDICATION
  5. HEPARIN [Suspect]
     Active Substance: HEPARIN SODIUM
     Indication: CEREBROVASCULAR ACCIDENT
     Dosage: 2.67 ML, QH
     Route: 042
     Dates: start: 20170531, end: 20170603
  6. KARDEGIC [Suspect]
     Active Substance: ASPIRIN DL-LYSINE
     Indication: CEREBROVASCULAR ACCIDENT
     Dosage: 75 MG, QD
     Dates: start: 20170601, end: 20170607
  7. HEPARIN [Suspect]
     Active Substance: HEPARIN SODIUM
     Dosage: UNK
  8. OMNIPAQUE [Concomitant]
     Active Substance: IOHEXOL
     Indication: PRODUCT USED FOR UNKNOWN INDICATION
  9. NEBIVOLOL. [Concomitant]
     Active Substance: NEBIVOLOL
     Indication: PRODUCT USED FOR UNKNOWN INDICATION

REACTIONS (2)
  - Eosinophilia [Recovered/Resolved]
  - Toxic skin eruption [Recovered/Resolved]

NARRATIVE: CASE EVENT DATE: 20170606
